FAERS Safety Report 6119375-0 (Version None)
Quarter: 2009Q1

REPORT INFORMATION
  Report Type: 
  Country: None (occurrence: None)
  Receive Date: 20090316
  Receipt Date: 20090304
  Transmission Date: 20090719
  Serious: Yes (Other)
  Sender: FDA-Public Use
  Company Number: PHHY2009JP08117

PATIENT
  Age: 32 Year
  Sex: Female

DRUGS (1)
  1. METOPIRONE [Suspect]
     Indication: PITUITARY-DEPENDENT CUSHING'S SYNDROME

REACTIONS (1)
  - PITUITARY HAEMORRHAGE [None]
